FAERS Safety Report 6839697-5 (Version None)
Quarter: 2010Q3

REPORT INFORMATION
  Report Type: 
  Country: None (occurrence: None)
  Receive Date: 20100714
  Receipt Date: 20100702
  Transmission Date: 20110219
  Serious: Yes (Hospitalization, Disabling)
  Sender: FDA-Public Use
  Company Number: JP-BRISTOL-MYERS SQUIBB COMPANY-15185952

PATIENT
  Age: 26 Year
  Sex: Male

DRUGS (11)
  1. EFAVIRENZ [Suspect]
     Indication: HIV INFECTION
     Dosage: 7FEB07-21FEB07
     Route: 048
     Dates: start: 20050921
  2. RALTEGRAVIR [Suspect]
     Indication: HIV INFECTION
     Dosage: FORMULATION:TABLET, CONTINUING
     Route: 048
     Dates: start: 20100127
  3. RETROVIR [Suspect]
     Indication: HIV INFECTION
     Dosage: FORMULATION:CAPSULE
     Dates: start: 19961227, end: 20050921
  4. EPIVIR [Suspect]
     Indication: HIV INFECTION
     Dosage: FORMULATION:TABLET
     Dates: start: 19970228, end: 20050921
  5. NORVIR [Suspect]
     Indication: HIV INFECTION
     Dosage: FORMULATION:CAPSULE
     Dates: start: 20090128, end: 20090617
  6. KALETRA [Suspect]
     Indication: HIV INFECTION
     Dosage: 1DF=4TAB
     Dates: start: 20070221, end: 20090128
  7. LEXIVA [Suspect]
     Indication: HIV INFECTION
     Dosage: TABLET
     Dates: start: 20090128, end: 20090617
  8. EPZICOM [Suspect]
     Indication: HIV INFECTION
     Dosage: 1DF=1TAB
     Dates: start: 20090617, end: 20100127
  9. TRUVADA [Suspect]
     Indication: HIV INFECTION
     Dosage: 1DF=1TAB.ALSO 27JAN2010-ONGOING
     Dates: start: 20070207
  10. INTELENCE [Suspect]
     Indication: HIV INFECTION
     Dates: start: 20090617, end: 20100127
  11. INVIRASE [Suspect]
     Indication: HIV INFECTION
     Dosage: CAPSULE
     Dates: start: 19971003, end: 20050921

REACTIONS (3)
  - SPASTIC PARAPLEGIA [None]
  - SPINAL CORD DISORDER [None]
  - VITAMIN B12 DEFICIENCY [None]
